FAERS Safety Report 12596963 (Version 1)
Quarter: 2016Q3

REPORT INFORMATION
  Report Type: Spontaneous
  Country: US (occurrence: US)
  Receive Date: 20160726
  Receipt Date: 20160726
  Transmission Date: 20161109
  Serious: No
  Sender: FDA-Public Use
  Company Number: US-UNITED THERAPEUTICS-UNT-2016-007141

PATIENT
  Age: 67 Year
  Sex: Female
  Weight: 91.61 kg

DRUGS (4)
  1. TYVASO [Suspect]
     Active Substance: TREPROSTINIL
     Dosage: UNK
  2. TYVASO [Suspect]
     Active Substance: TREPROSTINIL
     Indication: PULMONARY HYPERTENSION
     Dosage: 18-54 MICROGRAMS,QID
     Dates: start: 20151019
  3. ADCIRCA [Concomitant]
     Active Substance: TADALAFIL
     Indication: PRODUCT USED FOR UNKNOWN INDICATION
  4. TRACLEER [Concomitant]
     Active Substance: BOSENTAN
     Indication: PRODUCT USED FOR UNKNOWN INDICATION

REACTIONS (14)
  - Activities of daily living impaired [Unknown]
  - Nasopharyngitis [Unknown]
  - Sneezing [Unknown]
  - Seasonal allergy [Unknown]
  - Therapy non-responder [Unknown]
  - Tremor [Unknown]
  - Pyrexia [Unknown]
  - Cough [Unknown]
  - Rhinorrhoea [Unknown]
  - Oxygen consumption increased [Unknown]
  - Condition aggravated [Unknown]
  - Headache [Unknown]
  - Fluid retention [Unknown]
  - Ageusia [Unknown]

NARRATIVE: CASE EVENT DATE: 201510
